FAERS Safety Report 5259674-8 (Version None)
Quarter: 2007Q1

REPORT INFORMATION
  Report Type: 
  Country: None (occurrence: None)
  Receive Date: 20070307
  Receipt Date: 20070307
  Transmission Date: 20070707
  Serious: Yes (Life-Threatening, Hospitalization, Other)
  Sender: FDA-Public Use
  Company Number: None

PATIENT
  Age: 49 Year
  Sex: Male
  Weight: 104 kg

DRUGS (13)
  1. ERYTHROPOEITIN ALFA 10000 UNITS AMGEN [Suspect]
     Indication: BLOOD DISORDER
     Dosage: 30000 UNITS DAILY SQ
     Route: 058
     Dates: start: 20061212, end: 20070102
  2. ERYTHROPOEITIN ALFA 10000 UNITS AMGEN [Suspect]
     Indication: PREOPERATIVE CARE
     Dosage: 30000 UNITS DAILY SQ
     Route: 058
     Dates: start: 20061212, end: 20070102
  3. ASCORBIC ACID [Concomitant]
  4. FUROSEMIDE [Concomitant]
  5. ASPIRIN [Concomitant]
  6. ESOMEPRAZOLE MAGNESIUM [Concomitant]
  7. CAPTOPRIL [Concomitant]
  8. SIMVASTATIN [Concomitant]
  9. ACETAMINOPHEN [Concomitant]
  10. METOPROLOL SUCCINATE [Concomitant]
  11. LORAZEPAM [Concomitant]
  12. ZOLPIDEM TARTRATE [Concomitant]
  13. NIFEREX [Concomitant]

REACTIONS (5)
  - ASPIRATION [None]
  - CEREBRAL INFARCTION [None]
  - CEREBROVASCULAR ACCIDENT [None]
  - ENDOTRACHEAL INTUBATION COMPLICATION [None]
  - RESPIRATORY DISTRESS [None]
